FAERS Safety Report 17251794 (Version 5)
Quarter: 2024Q3

REPORT INFORMATION
  Report Type: Spontaneous
  Country: FR (occurrence: FR)
  Receive Date: 20200109
  Receipt Date: 20240829
  Transmission Date: 20241016
  Serious: Yes (Other)
  Sender: MYLAN
  Company Number: None

PATIENT
  Age: 70 Year
  Sex: Female

DRUGS (16)
  1. PREDNISONE [Suspect]
     Active Substance: PREDNISONE
     Indication: Bronchitis
     Dosage: 40 MILLIGRAM, QD
     Route: 048
     Dates: start: 20180305, end: 20180307
  2. PREDNISONE [Suspect]
     Active Substance: PREDNISONE
     Dosage: 1 GRAM, QD, 1 G, QD
     Route: 048
     Dates: start: 20180305, end: 20180310
  3. ACETAMINOPHEN [Suspect]
     Active Substance: ACETAMINOPHEN
     Indication: Bronchitis
     Dosage: 1 GRAM, QD
     Route: 048
     Dates: start: 20180305, end: 20180310
  4. ACETAMINOPHEN [Suspect]
     Active Substance: ACETAMINOPHEN
     Dosage: UNK UNK, QD, 3 GRAM PER GRAM, QD
     Route: 048
     Dates: start: 20180305, end: 20180310
  5. ACETAMINOPHEN [Suspect]
     Active Substance: ACETAMINOPHEN
     Dosage: 3 GRAM, QD
     Route: 048
     Dates: start: 20180305, end: 20180310
  6. OXOMEMAZINE [Suspect]
     Active Substance: OXOMEMAZINE
     Indication: Bronchitis
     Dosage: 160 MILLIGRAM, QD
     Route: 048
     Dates: start: 20180305, end: 20180310
  7. OXOMEMAZINE [Suspect]
     Active Substance: OXOMEMAZINE
     Dosage: 1 GRAM, QD
     Route: 048
     Dates: start: 20180305, end: 20180310
  8. ACETYLCYSTEINE [Suspect]
     Active Substance: ACETYLCYSTEINE
     Indication: Bronchitis
     Dosage: 400 MILLIGRAM, QD, 400 MG, QD
     Route: 048
     Dates: start: 20180305, end: 20180309
  9. ACETYLCYSTEINE [Suspect]
     Active Substance: ACETYLCYSTEINE
     Dosage: 40 MILLIGRAM, QD, 40 MG, QD
     Route: 048
     Dates: start: 20180305, end: 20180309
  10. ACETYLCYSTEINE [Suspect]
     Active Substance: ACETYLCYSTEINE
     Dosage: 200 MILLIGRAM, QD, 200 MG, QD
     Route: 048
     Dates: start: 20180305, end: 20180309
  11. AMOXICILLIN [Suspect]
     Active Substance: AMOXICILLIN
     Indication: Bronchitis
     Dosage: 1 GRAM, QD, 1 G, QD
     Route: 048
     Dates: start: 20180305, end: 20180310
  12. AMOXICILLIN [Suspect]
     Active Substance: AMOXICILLIN
     Dosage: 3 GRAM, QD, 3 UNK
     Route: 065
     Dates: start: 20180305
  13. MOMETASONE FUROATE [Suspect]
     Active Substance: MOMETASONE FUROATE
     Indication: Product used for unknown indication
     Dosage: 100 MICROGRAM, QD, 100 ?G, QD
     Route: 048
     Dates: start: 20180305
  14. MOMETASONE FUROATE [Suspect]
     Active Substance: MOMETASONE FUROATE
     Dosage: UNK UNK, QD, 50 MICROGRAM PER GRAM, QD
     Route: 048
     Dates: start: 20180305
  15. LEVOTHYROXINE [Concomitant]
     Active Substance: LEVOTHYROXINE\LEVOTHYROXINE SODIUM
     Indication: Product used for unknown indication
     Dosage: UNK
     Route: 065
  16. OXAZEPAM [Concomitant]
     Active Substance: OXAZEPAM
     Indication: Product used for unknown indication
     Dosage: UNK
     Route: 065

REACTIONS (4)
  - Skin burning sensation [Recovered/Resolved]
  - Rash [Recovered/Resolved]
  - Rash maculo-papular [Recovered/Resolved]
  - Pruritus [Recovered/Resolved]

NARRATIVE: CASE EVENT DATE: 20190309
